FAERS Safety Report 17771190 (Version 1)
Quarter: 2020Q2

REPORT INFORMATION
  Report Type: Spontaneous
  Country: US (occurrence: US)
  Receive Date: 20200512
  Receipt Date: 20200512
  Transmission Date: 20200714
  Serious: No
  Sender: FDA-Public Use
  Company Number: US-PERRIGO-20US005516

PATIENT
  Age: 52 Year
  Sex: Female
  Weight: 91.61 kg

DRUGS (5)
  1. PERMETHRIN. [Suspect]
     Active Substance: PERMETHRIN
     Dosage: 1 APPLICATION, TWICE (7 DAYS APART)
     Route: 061
     Dates: start: 202001, end: 202001
  2. PERMETHRIN. [Suspect]
     Active Substance: PERMETHRIN
     Dosage: 1 APPLICATION, TWICE (7 DAYS APART)
     Route: 061
     Dates: start: 201912, end: 201912
  3. PERMETHRIN. [Suspect]
     Active Substance: PERMETHRIN
     Dosage: 1 APPLICATION, SINGLE (7 DAYS AFTER THE APPLICATION IN MAR2020)
     Route: 061
     Dates: start: 202004, end: 202004
  4. PERMETHRIN. [Suspect]
     Active Substance: PERMETHRIN
     Indication: ACARODERMATITIS
     Dosage: 1 APPLICATION, TWICE (7 DAYS APART)
     Route: 061
     Dates: start: 201911, end: 201911
  5. PERMETHRIN. [Suspect]
     Active Substance: PERMETHRIN
     Dosage: 1 APPLICATION, SINGLE
     Route: 061
     Dates: start: 202003, end: 202003

REACTIONS (1)
  - Drug ineffective [Unknown]

NARRATIVE: CASE EVENT DATE: 201911
